FAERS Safety Report 17579802 (Version 1)
Quarter: 2020Q1

REPORT INFORMATION
  Report Type: Spontaneous
  Country: BR (occurrence: BR)
  Receive Date: 20200325
  Receipt Date: 20200325
  Transmission Date: 20200409
  Serious: Yes (Other)
  Sender: FDA-Public Use
  Company Number: BR-JNJFOC-20200325585

PATIENT
  Age: 69 Year
  Sex: Female

DRUGS (2)
  1. RIVAROXABAN [Suspect]
     Active Substance: RIVAROXABAN
     Indication: CEREBROVASCULAR ACCIDENT
     Route: 048
  2. ELIQUIS [Concomitant]
     Active Substance: APIXABAN
     Indication: CEREBROVASCULAR ACCIDENT
     Dosage: 5 MG, BID
     Route: 048

REACTIONS (3)
  - Malaise [Unknown]
  - Product dose omission [Unknown]
  - Cerebrovascular accident [Unknown]

NARRATIVE: CASE EVENT DATE: 201903
